FAERS Safety Report 9436197 (Version 3)
Quarter: 2013Q4

REPORT INFORMATION
  Report Type: Spontaneous
  Country: US (occurrence: US)
  Receive Date: 20130801
  Receipt Date: 20131106
  Transmission Date: 20140711
  Serious: Yes (Death)
  Sender: FDA-Public Use
  Company Number: US-ROCHE-1255197

PATIENT
  Age: 50 Year
  Sex: Male

DRUGS (1)
  1. RITUXAN [Suspect]
     Indication: RHEUMATOID ARTHRITIS
     Dosage: 2 EVERY 6 MONTHS
     Route: 042
     Dates: start: 201002, end: 201010

REACTIONS (2)
  - Colon cancer metastatic [Fatal]
  - Gastric cancer [Fatal]
